FAERS Safety Report 7823810-7 (Version None)
Quarter: 2011Q4

REPORT INFORMATION
  Report Type: 
  Country: None (occurrence: None)
  Receive Date: 20111019
  Receipt Date: 20111010
  Transmission Date: 20120403
  Serious: Yes (Hospitalization)
  Sender: FDA-Public Use
  Company Number: NZ-ASTELLAS-2011EU006949

PATIENT
  Age: 49 Year
  Sex: Female

DRUGS (11)
  1. TACROLIMUS [Suspect]
     Indication: LIVER TRANSPLANT
     Dosage: 3 MG, BID
     Route: 065
  2. PREDNISONE [Suspect]
     Dosage: 5 MG, UID/QD
  3. OMEPRAZOLE [Concomitant]
     Dosage: 20 MG, UID/QD
     Route: 065
  4. PIZOTIFEN MALEATE [Concomitant]
     Dosage: 0.5 MG, UID/QD
     Route: 065
  5. MORPHINE SULFATE [Concomitant]
     Dosage: UNK
     Route: 065
  6. AMITRIPTYLINE HCL [Concomitant]
     Dosage: 30 MG, UID/QD
     Route: 065
  7. TACROLIMUS [Suspect]
     Dosage: 2 MG, BID
     Route: 065
  8. PREDNISONE [Suspect]
     Indication: LIVER TRANSPLANT
     Dosage: 12.5 MG, OTHER
     Route: 065
  9. MESALAMINE [Suspect]
     Indication: COLITIS
     Dosage: 1 G, BID
     Route: 065
  10. ACETAMINOPHEN [Concomitant]
     Dosage: 1 G, QID
     Route: 065
  11. MYCOPHENOLATE MOFETIL [Suspect]
     Indication: LIVER TRANSPLANT
     Dosage: 1000 MG, BID
     Route: 065

REACTIONS (5)
  - LIVER TRANSPLANT REJECTION [None]
  - HEPATITIS FULMINANT [None]
  - DIARRHOEA [None]
  - CLOSTRIDIUM DIFFICILE COLITIS [None]
  - DRUG INEFFECTIVE [None]
